FAERS Safety Report 24743594 (Version 1)
Quarter: 2024Q4

REPORT INFORMATION
  Report Type: Other
  Country: AU (occurrence: AU)
  Receive Date: 20241217
  Receipt Date: 20241217
  Transmission Date: 20250115
  Serious: Yes (Other)
  Sender: LUPIN
  Company Number: AU-LUPIN EUROPE GMBH-2024-12054

PATIENT
  Age: 25 Year
  Sex: Female

DRUGS (2)
  1. ARIPIPRAZOLE [Suspect]
     Active Substance: ARIPIPRAZOLE
     Indication: Product used for unknown indication
     Dosage: UNK
     Route: 065
  2. ABILIFY MAINTENA [Suspect]
     Active Substance: ARIPIPRAZOLE
     Indication: Product used for unknown indication
     Dosage: UNK
     Route: 065

REACTIONS (7)
  - Psychotic disorder [Unknown]
  - Aggression [Unknown]
  - Compulsive shopping [Unknown]
  - Hallucination, auditory [Unknown]
  - Hallucination, visual [Unknown]
  - Intentional self-injury [Unknown]
  - Malaise [Unknown]
